FAERS Safety Report 13686269 (Version 1)
Quarter: 2017Q2

REPORT INFORMATION
  Report Type: Spontaneous
  Country: US (occurrence: US)
  Receive Date: 20170623
  Receipt Date: 20170623
  Transmission Date: 20170830
  Serious: Yes (Hospitalization)
  Sender: FDA-Public Use
  Company Number: US-ROCHE-1017339

PATIENT
  Sex: Female

DRUGS (1)
  1. CELLCEPT [Suspect]
     Active Substance: MYCOPHENOLATE MOFETIL\MYCOPHENOLATE MOFETIL HYDROCHLORIDE
     Indication: RETINITIS
     Route: 048

REACTIONS (8)
  - Palpitations [Unknown]
  - Increased tendency to bruise [Unknown]
  - Back pain [Unknown]
  - Urinary tract infection [Unknown]
  - Blood urine present [Unknown]
  - Dehydration [Unknown]
  - Asthenia [Unknown]
  - Impaired healing [Unknown]
